FAERS Safety Report 6736415-6 (Version None)
Quarter: 2010Q2

REPORT INFORMATION
  Report Type: 
  Country: None (occurrence: None)
  Receive Date: 20100521
  Receipt Date: 20100513
  Transmission Date: 20101027
  Serious: Yes (Life-Threatening)
  Sender: FDA-Public Use
  Company Number: JP-MERCK-1004USA03948

PATIENT
  Age: 61 Year
  Sex: Male

DRUGS (5)
  1. FOSAMAX [Suspect]
     Indication: OSTEOPOROSIS
     Route: 048
     Dates: start: 20100311, end: 20100415
  2. TEGRETOL [Suspect]
     Indication: ENCEPHALITIS
     Route: 048
     Dates: start: 20100108, end: 20100416
  3. CORTICOSTEROIDS (UNSPECIFIED) [Concomitant]
     Indication: ENCEPHALITIS
     Route: 065
  4. GABAPEN [Suspect]
     Indication: ENCEPHALITIS
     Route: 048
     Dates: start: 20100131, end: 20100416
  5. LAMICTAL [Suspect]
     Indication: ENCEPHALITIS
     Route: 048
     Dates: start: 20100311, end: 20100412

REACTIONS (1)
  - GRANULOCYTE COUNT DECREASED [None]
